FAERS Safety Report 8524628-2 (Version None)
Quarter: 2012Q3

REPORT INFORMATION
  Report Type: 
  Country: None (occurrence: None)
  Receive Date: 20120720
  Receipt Date: 20120709
  Transmission Date: 20120928
  Serious: Yes (Hospitalization)
  Sender: FDA-Public Use
  Company Number: TW-ROCHE-1085458

PATIENT
  Sex: Female
  Weight: 87.9 kg

DRUGS (7)
  1. HERCEPTIN [Suspect]
     Indication: BREAST CANCER
     Dosage: LOADING DOSE, 624 MG
     Route: 042
     Dates: start: 20120409
  2. SENOKOT [Concomitant]
     Dates: start: 20120227
  3. ZOLPIDEM [Concomitant]
     Dates: start: 20120227
  4. PERTUZUMAB [Suspect]
     Indication: BREAST CANCER
     Route: 042
     Dates: start: 20120409, end: 20120702
  5. DOCETAXEL [Suspect]
     Dosage: LAST DOSE BEFORE SAE ON: 21/MAY/2012
     Route: 042
     Dates: start: 20120430, end: 20120611
  6. HERCEPTIN [Suspect]
     Dosage: LOADING DOSE, 468MG
     Route: 042
     Dates: end: 20120702
  7. DOCETAXEL [Suspect]
     Indication: BREAST CANCER
     Route: 042
     Dates: start: 20120409

REACTIONS (1)
  - GENERALISED OEDEMA [None]
